FAERS Safety Report 21901556 (Version 1)
Quarter: 2023Q1

REPORT INFORMATION
  Report Type: Other
  Country: IT (occurrence: IT)
  Receive Date: 20230123
  Receipt Date: 20230123
  Transmission Date: 20230418
  Serious: Yes (Other)
  Sender: FDA-Public Use
  Company Number: IT-CELLTRION INC.-2023IT000908

PATIENT

DRUGS (1)
  1. INFLIXIMAB [Suspect]
     Active Substance: INFLIXIMAB
     Indication: Colitis ulcerative
     Dosage: 108 MILLIGRAM, EVERY 7 DAYS
     Route: 058
     Dates: start: 202207, end: 20221228

REACTIONS (7)
  - Rectal haemorrhage [Unknown]
  - Pain [Unknown]
  - Pyrexia [Unknown]
  - Abdominal pain [Unknown]
  - Therapy non-responder [Unknown]
  - Off label use [Unknown]
  - Underdose [Unknown]

NARRATIVE: CASE EVENT DATE: 20220701
